FAERS Safety Report 18187571 (Version 2)
Quarter: 2020Q3

REPORT INFORMATION
  Report Type: Spontaneous
  Country: PL (occurrence: PL)
  Receive Date: 20200824
  Receipt Date: 20200918
  Transmission Date: 20201103
  Serious: Yes (Other)
  Sender: FDA-Public Use
  Company Number: PL-BEH-2020120874

PATIENT
  Age: 23 Year
  Sex: Female
  Weight: 73 kg

DRUGS (6)
  1. RHOPHYLAC [Suspect]
     Active Substance: HUMAN RHO(D) IMMUNE GLOBULIN
     Indication: RHESUS INCOMPATIBILITY
     Dosage: AT 30 WKS OF PREGNANCY AND AFTER DELIVERY, ALSO REPORTED: AN INJECTION AFTER 1ST CHILDBIRTH
     Route: 065
     Dates: start: 20200115, end: 20200115
  2. RHOPHYLAC [Suspect]
     Active Substance: HUMAN RHO(D) IMMUNE GLOBULIN
     Dosage: 2 DAYS AFTER DELIVERY
     Route: 065
     Dates: start: 20200328, end: 20200328
  3. EUTHYROX [Concomitant]
     Active Substance: LEVOTHYROXINE SODIUM
     Indication: AUTOIMMUNE THYROIDITIS
     Dosage: 50 MICROGRAM, QD
     Route: 048
     Dates: start: 2017
  4. RHOPHYLAC [Suspect]
     Active Substance: HUMAN RHO(D) IMMUNE GLOBULIN
     Indication: RHESUS INCOMPATIBILITY
     Dosage: AT 30 WKS OF PREGNANCY AND AFTER DELIVERY, ALSO REPORTED: AN INJECTION AFTER 1ST CHILDBIRTH
     Route: 065
     Dates: start: 20200115, end: 20200115
  5. DOPEGYT [Concomitant]
     Active Substance: METHYLDOPA
     Indication: HYPERTENSION
     Dosage: UNK
     Route: 065
     Dates: start: 2020, end: 2020
  6. RHOPHYLAC [Suspect]
     Active Substance: HUMAN RHO(D) IMMUNE GLOBULIN
     Dosage: 2 DAYS AFTER DELIVERY
     Route: 065
     Dates: start: 20200328, end: 20200328

REACTIONS (2)
  - Exposure during pregnancy [Unknown]
  - Drug ineffective [Unknown]
